FAERS Safety Report 9708648 (Version 3)
Quarter: 2013Q4

REPORT INFORMATION
  Report Type: Spontaneous
  Country: NO (occurrence: NO)
  Receive Date: 20131125
  Receipt Date: 20131217
  Transmission Date: 20140711
  Serious: Yes (Other)
  Sender: FDA-Public Use
  Company Number: NO-WATSON-2013-21584

PATIENT
  Sex: Male

DRUGS (8)
  1. PREDNISOLONE (UNKNOWN) [Suspect]
     Indication: GRANULOMATOSIS WITH POLYANGIITIS
     Dosage: 15 MG, DAILY
     Route: 065
  2. PREDNISOLONE (UNKNOWN) [Suspect]
     Dosage: 40 MG, DAILY
     Route: 048
  3. PREDNISOLONE (UNKNOWN) [Suspect]
     Dosage: 5 MG, DAILY
     Route: 048
     Dates: start: 201104
  4. MYCOPHENOLATE MOFETIL (UNKNOWN) [Suspect]
     Indication: PRODUCT USED FOR UNKNOWN INDICATION
     Dosage: 1500 MG, DAILY
     Route: 065
     Dates: start: 2002, end: 2011
  5. METHYLPREDNISOLONE (UNKNOWN) [Suspect]
     Indication: GRANULOMATOSIS WITH POLYANGIITIS
     Dosage: 125 MG, UNK
     Route: 065
  6. METHOTREXATE (UNKNOWN) [Suspect]
     Indication: GRANULOMATOSIS WITH POLYANGIITIS
     Dosage: UNK
     Route: 065
     Dates: start: 1999, end: 2001
  7. RITUXIMAB [Suspect]
     Indication: GRANULOMATOSIS WITH POLYANGIITIS
     Dosage: 1 G, 2/WEEK; TWO 1 G INFUSIONS 2 WEEKS APART; INFUSION
     Route: 042
     Dates: start: 2011
  8. CYCLOPHOSPHAMIDE [Concomitant]
     Indication: GRANULOMATOSIS WITH POLYANGIITIS
     Dosage: 25 G, TOTAL
     Route: 042

REACTIONS (4)
  - Pneumocystis jirovecii pneumonia [Recovered/Resolved]
  - Herpes zoster [Recovered/Resolved]
  - Pneumonia [Recovered/Resolved]
  - Cytomegalovirus infection [Recovered/Resolved]
